FAERS Safety Report 8596866-4 (Version None)
Quarter: 2012Q3

REPORT INFORMATION
  Report Type: 
  Country: None (occurrence: None)
  Receive Date: 20120815
  Receipt Date: 20120808
  Transmission Date: 20120928
  Serious: Yes (Hospitalization, Other)
  Sender: FDA-Public Use
  Company Number: US-BAXTER-2012BAX013147

PATIENT
  Sex: Female

DRUGS (1)
  1. DIANEAL LOW CALCIUM W/ DEXTROSE 1.5% [Suspect]
     Indication: PERITONEAL DIALYSIS
     Route: 033

REACTIONS (5)
  - RENAL CYST RUPTURED [None]
  - INFECTION [None]
  - MALAISE [None]
  - ABDOMINAL DISCOMFORT [None]
  - PYREXIA [None]
